FAERS Safety Report 21302957 (Version 1)
Quarter: 2022Q3

REPORT INFORMATION
  Report Type: Spontaneous
  Country: US (occurrence: None)
  Receive Date: 20220907
  Receipt Date: 20220907
  Transmission Date: 20221026
  Serious: Yes (Hospitalization)
  Sender: FDA-Public Use
  Company Number: None

PATIENT
  Age: 83 Year
  Sex: Male
  Weight: 63.19 kg

DRUGS (18)
  1. ERLEADA [Suspect]
     Active Substance: APALUTAMIDE
     Indication: Prostate cancer
     Dosage: FREQUENCY : DAILY;?
     Route: 048
  2. ALLOPURINOL [Concomitant]
     Active Substance: ALLOPURINOL
  3. AMLODIPINE [Concomitant]
  4. ATENOLOL [Concomitant]
     Active Substance: ATENOLOL
  5. ATORVASTATIN [Concomitant]
  6. CEFDINIR [Concomitant]
  7. COLCRYS [Concomitant]
  8. DONEPEZIL [Concomitant]
  9. FAMOTIDINE [Concomitant]
  10. FUROSEMIDE [Concomitant]
  11. HYDROCHLOROTHIAZIDE [Concomitant]
  12. LINZESS [Concomitant]
  13. LISINOPRIL [Concomitant]
  14. NITROGLYVERIN [Concomitant]
  15. OMEPRAZOLE [Concomitant]
  16. PRAZOSIN [Concomitant]
  17. TADALAFIL [Concomitant]
  18. VITAMIN D3 [Concomitant]

REACTIONS (1)
  - Hospitalisation [None]
